FAERS Safety Report 9910416 (Version 1)
Quarter: 2014Q1

REPORT INFORMATION
  Report Type: Report from Study
  Country: IN (occurrence: IN)
  Receive Date: 20140219
  Receipt Date: 20140219
  Transmission Date: 20141002
  Serious: Yes (Other)
  Sender: FDA-Public Use
  Company Number: IN-PFIZER INC-2014044589

PATIENT
  Sex: 0

DRUGS (1)
  1. SIROLIMUS [Suspect]
     Indication: RENAL TRANSPLANT
     Dosage: UNK

REACTIONS (2)
  - Thrombotic microangiopathy [Unknown]
  - Haemolytic uraemic syndrome [Unknown]
